FAERS Safety Report 25167977 (Version 1)
Quarter: 2025Q2

REPORT INFORMATION
  Report Type: Spontaneous
  Country: SE (occurrence: SE)
  Receive Date: 20250407
  Receipt Date: 20250407
  Transmission Date: 20250716
  Serious: Yes (Life-Threatening, Other)
  Sender: BIOVITRUM
  Company Number: SE-BIOVITRUM-2025-SE-004775

PATIENT
  Age: 3 Year
  Sex: Male

DRUGS (3)
  1. ANAKINRA [Suspect]
     Active Substance: ANAKINRA
     Indication: Still^s disease
     Dates: start: 20220421, end: 202301
  2. ANAKINRA [Suspect]
     Active Substance: ANAKINRA
     Dates: start: 2024
  3. TOFACITINIB [Suspect]
     Active Substance: TOFACITINIB
     Indication: Product used for unknown indication

REACTIONS (6)
  - Interstitial lung disease [Unknown]
  - Haemophagocytic lymphohistiocytosis [Unknown]
  - Pneumonia lipoid [Unknown]
  - Staphylococcal infection [Unknown]
  - Pneumocystis jirovecii infection [Unknown]
  - Influenza [Unknown]

NARRATIVE: CASE EVENT DATE: 20240901
